FAERS Safety Report 8605165-3 (Version None)
Quarter: 2012Q3

REPORT INFORMATION
  Report Type: 
  Country: None (occurrence: None)
  Receive Date: 20120820
  Receipt Date: 20120813
  Transmission Date: 20120928
  Serious: Yes (Death, Other)
  Sender: FDA-Public Use
  Company Number: US-PFIZER INC-2012162384

PATIENT
  Age: 79 Year
  Sex: Male

DRUGS (2)
  1. XALKORI [Suspect]
     Dosage: 200 MG, 2X/DAY (TWICE DAILY)
  2. XALKORI [Suspect]
     Indication: LUNG NEOPLASM MALIGNANT
     Dosage: 250 MG, 2X/DAY

REACTIONS (2)
  - HEART RATE DECREASED [None]
  - DEATH [None]
